FAERS Safety Report 9797919 (Version 1)
Quarter: 2014Q1

REPORT INFORMATION
  Report Type: Not Available
  Country: FR (occurrence: FR)
  Receive Date: 20140106
  Receipt Date: 20140106
  Transmission Date: 20141002
  Serious: Yes (Hospitalization, Other)
  Sender: FDA-Public Use
  Company Number: FR-BEH-2014039840

PATIENT
  Age: 52 Year
  Sex: Male

DRUGS (2)
  1. PRIVIGEN [Suspect]
     Indication: POLYNEUROPATHY
     Route: 042
     Dates: start: 20131112, end: 20131115
  2. CORTICOSTEROIDS [Concomitant]

REACTIONS (5)
  - Pulmonary embolism [Recovering/Resolving]
  - Dyspnoea exertional [Recovering/Resolving]
  - Chest pain [Recovering/Resolving]
  - Venous thrombosis limb [Unknown]
  - Dyshidrotic eczema [Unknown]
